FAERS Safety Report 5701646-0 (Version None)
Quarter: 2008Q2

REPORT INFORMATION
  Report Type: 
  Country: None (occurrence: None)
  Receive Date: 20080403
  Receipt Date: 20080403
  Transmission Date: 20081010
  Serious: Yes (Hospitalization)
  Sender: FDA-Public Use
  Company Number: None

PATIENT
  Sex: Female
  Weight: 35.8 kg

DRUGS (3)
  1. FLUOROURACIL [Suspect]
     Dosage: 2636 MG
     Dates: end: 20080319
  2. BEVACIZUMAB (RHUMAB VEGF) [Suspect]
     Dosage: 230 MG
     Dates: end: 20080319
  3. LEUCOVORIN CALCIUM [Suspect]
     Dosage: 560 MG
     Dates: end: 20080319

REACTIONS (3)
  - CONFUSIONAL STATE [None]
  - PYREXIA [None]
  - VOMITING [None]
